FAERS Safety Report 12366582 (Version 1)
Quarter: 2016Q2

REPORT INFORMATION
  Report Type: Spontaneous
  Country: US (occurrence: US)
  Receive Date: 20160513
  Receipt Date: 20160513
  Transmission Date: 20160815
  Serious: No
  Sender: FDA-Public Use
  Company Number: US-GLENMARK PHARMACEUTICALS INC, USA.-2015GMK020778

PATIENT

DRUGS (2)
  1. CALCIPOTREINE [Suspect]
     Active Substance: CALCIPOTRIENE
     Indication: PRURITUS
     Dosage: SMALL AMOUNT, BID
     Route: 061
     Dates: start: 20151104, end: 20151106
  2. CALCIPOTREINE [Suspect]
     Active Substance: CALCIPOTRIENE
     Indication: SKIN TIGHTNESS

REACTIONS (3)
  - Application site exfoliation [Not Recovered/Not Resolved]
  - Off label use [Unknown]
  - Application site pain [Not Recovered/Not Resolved]

NARRATIVE: CASE EVENT DATE: 201511
